FAERS Safety Report 18353517 (Version 1)
Quarter: 2020Q4

REPORT INFORMATION
  Report Type: Other
  Country: CN (occurrence: CN)
  Receive Date: 20201007
  Receipt Date: 20201007
  Transmission Date: 20210114
  Serious: Yes (Other)
  Sender: FDA-Public Use
  Company Number: CN-ROCHE-2679810

PATIENT

DRUGS (2)
  1. CAPECITABINE. [Suspect]
     Active Substance: CAPECITABINE
     Indication: GASTRIC CANCER
     Dosage: FOR 14 CONSECUTIVE DAYS, REPEAT EVERY 3 WEEKS.
     Route: 048
  2. OXALIPLATIN. [Suspect]
     Active Substance: OXALIPLATIN
     Indication: GASTRIC CANCER
     Dosage: INFUSED ONCE WITHIN 2 HOURS, REPEAT EVERY 3 WEEKS
     Route: 042

REACTIONS (5)
  - Vomiting [Unknown]
  - Oedematous pancreatitis [Unknown]
  - Leukopenia [Unknown]
  - Neutropenia [Unknown]
  - Pancreatic fistula [Recovered/Resolved]
